FAERS Safety Report 24549037 (Version 1)
Quarter: 2024Q4

REPORT INFORMATION
  Report Type: Spontaneous
  Country: MX (occurrence: MX)
  Receive Date: 20241025
  Receipt Date: 20241025
  Transmission Date: 20250115
  Serious: Yes (Other)
  Sender: RANBAXY
  Company Number: MX-SUN PHARMACEUTICAL INDUSTRIES LTD-2024R1-475414

PATIENT
  Age: 11 Month
  Sex: Female

DRUGS (4)
  1. DOXORUBICIN [Suspect]
     Active Substance: DOXORUBICIN
     Indication: Osteosarcoma
     Dosage: 75 MILLIGRAM/SQ. METER(2 DAYS PER WEEK)
     Route: 065
     Dates: end: 20240404
  2. CISPLATIN [Suspect]
     Active Substance: CISPLATIN
     Indication: Osteosarcoma
     Dosage: 120 MILLIGRAM/SQ. METER(2 DAYS PER WEEK)
     Route: 065
     Dates: end: 20240404
  3. METHOTREXATE [Suspect]
     Active Substance: METHOTREXATE
     Indication: Osteosarcoma
     Dosage: 12 GRAM PER SQUARE METRE
     Route: 065
     Dates: end: 20240404
  4. LEUCOVORIN CALCIUM [Suspect]
     Active Substance: LEUCOVORIN CALCIUM
     Indication: Osteosarcoma
     Dosage: UNK
     Route: 065
     Dates: start: 20230917, end: 20240404

REACTIONS (2)
  - Haematotoxicity [Unknown]
  - Gastrointestinal toxicity [Unknown]
